FAERS Safety Report 19253929 (Version 17)
Quarter: 2024Q2

REPORT INFORMATION
  Report Type: Other
  Country: US (occurrence: None)
  Receive Date: 20210513
  Receipt Date: 20240522
  Transmission Date: 20240716
  Serious: Yes (Hospitalization)
  Sender: FDA-Public Use
  Company Number: US-ROCHE-2824784

PATIENT
  Age: 64 Year
  Sex: Female
  Weight: 56.296 kg

DRUGS (23)
  1. OCREVUS [Suspect]
     Active Substance: OCRELIZUMAB
     Indication: Relapsing-remitting multiple sclerosis
     Dosage: IV 600 MG EVERY 6 MONTHS?DOT: 12/MAY/2022, 12/NOV/2021, 02/JUN/2021, 29/OCT/2020, 12/APR/2020, 11/NO
     Route: 042
     Dates: start: 20201029
  2. OCREVUS [Suspect]
     Active Substance: OCRELIZUMAB
     Route: 042
     Dates: start: 20200429
  3. OCREVUS [Suspect]
     Active Substance: OCRELIZUMAB
     Dosage: 300 MG VIAL
     Route: 065
     Dates: start: 20201019, end: 20211019
  4. VALIUM [Suspect]
     Active Substance: DIAZEPAM
     Indication: Muscle spasms
     Dosage: WITH AN OPTION FOR A SECOND DOSE AS NEEDED
     Route: 048
  5. VALIUM [Suspect]
     Active Substance: DIAZEPAM
     Route: 048
  6. TECFIDERA [Concomitant]
     Active Substance: DIMETHYL FUMARATE
     Indication: Relapsing-remitting multiple sclerosis
  7. VITAMIN D3 [Concomitant]
     Active Substance: CHOLECALCIFEROL
  8. PROVIGIL [Concomitant]
     Active Substance: MODAFINIL
  9. OMEPRAZOLE [Concomitant]
     Active Substance: DONEPEZIL HYDROCHLORIDE\OMEPRAZOLE\OMEPRAZOLE MAGNESIUM
  10. NAMENDA [Concomitant]
     Active Substance: MEMANTINE HYDROCHLORIDE
  11. METOPROLOL TARTRATE [Concomitant]
     Active Substance: METOPROLOL TARTRATE
     Indication: Hypertension
  12. MELOXICAM [Concomitant]
     Active Substance: MELOXICAM
  13. MECLIZINE [Concomitant]
     Active Substance: MECLIZINE HYDROCHLORIDE
  14. MAGNESIUM GLUCONATE [Concomitant]
     Active Substance: MAGNESIUM GLUCONATE
  15. DIAZEPAM [Concomitant]
     Active Substance: DIAZEPAM
     Route: 048
  16. DETROL LA [Concomitant]
     Active Substance: TOLTERODINE TARTRATE
  17. CELEBREX [Concomitant]
     Active Substance: CELECOXIB
  18. BACLOFEN [Concomitant]
     Active Substance: BACLOFEN
  19. AMANTADINE [Concomitant]
     Active Substance: AMANTADINE
  20. BENADRYL [Concomitant]
     Active Substance: DIPHENHYDRAMINE HYDROCHLORIDE
  21. METOPROLOL [Concomitant]
     Active Substance: METOPROLOL
  22. PRILOSEC [Concomitant]
     Active Substance: OMEPRAZOLE MAGNESIUM
  23. ARICEPT [Concomitant]
     Active Substance: DONEPEZIL HYDROCHLORIDE
     Indication: Dementia Alzheimer^s type

REACTIONS (27)
  - COVID-19 [Recovered/Resolved]
  - Brain fog [Not Recovered/Not Resolved]
  - Alopecia [Not Recovered/Not Resolved]
  - Weight decreased [Recovered/Resolved]
  - Memory impairment [Not Recovered/Not Resolved]
  - Disturbance in attention [Not Recovered/Not Resolved]
  - Drug ineffective [Unknown]
  - Mental disorder [Unknown]
  - Fatigue [Not Recovered/Not Resolved]
  - Epistaxis [Not Recovered/Not Resolved]
  - Rosacea [Not Recovered/Not Resolved]
  - Skin exfoliation [Not Recovered/Not Resolved]
  - Dandruff [Not Recovered/Not Resolved]
  - Hypertension [Recovered/Resolved]
  - Choking [Not Recovered/Not Resolved]
  - Feeling abnormal [Unknown]
  - Cerebral disorder [Not Recovered/Not Resolved]
  - Breast cyst [Not Recovered/Not Resolved]
  - Vocal cord disorder [Not Recovered/Not Resolved]
  - Balance disorder [Not Recovered/Not Resolved]
  - Cognitive disorder [Not Recovered/Not Resolved]
  - Mental impairment [Unknown]
  - Amnesia [Not Recovered/Not Resolved]
  - Confusional state [Not Recovered/Not Resolved]
  - Dysgraphia [Not Recovered/Not Resolved]
  - Memory impairment [Not Recovered/Not Resolved]
  - Malaise [Unknown]

NARRATIVE: CASE EVENT DATE: 20210412
